FAERS Safety Report 18474042 (Version 1)
Quarter: 2020Q4

REPORT INFORMATION
  Report Type: Spontaneous
  Country: US (occurrence: US)
  Receive Date: 20201106
  Receipt Date: 20201106
  Transmission Date: 20210114
  Serious: No
  Sender: FDA-Public Use
  Company Number: None

PATIENT
  Age: 76 Year
  Sex: Male
  Weight: 90.36 kg

DRUGS (12)
  1. PREDNISONE. [Suspect]
     Active Substance: PREDNISONE
     Indication: PROSTATE CANCER
     Route: 048
     Dates: start: 20200723
  2. OMEPRAZOLE 20MG [Concomitant]
     Active Substance: OMEPRAZOLE
  3. MAGNESIUM OXIDE-MG SUPPLEMENT [Concomitant]
  4. ATORVASTATIN 10MG [Concomitant]
     Active Substance: ATORVASTATIN
  5. CALCIUM 600 + D [Concomitant]
     Active Substance: CALCIUM\VITAMIN D
  6. VITAMIN D 2000UNITS [Concomitant]
  7. CARVEDILOL 12.5MG [Concomitant]
     Active Substance: CARVEDILOL
  8. CENTRUM SILVER ADULT 50+ [Concomitant]
  9. ABIRATERONE ACETATE. [Suspect]
     Active Substance: ABIRATERONE ACETATE
     Indication: PROSTATE CANCER
     Route: 048
     Dates: start: 20200723
  10. VITAMIN B-12 ER 1000MCG [Concomitant]
  11. MELATONIN 5MG [Concomitant]
     Active Substance: MELATONIN
  12. LOSARTAN 100MG [Concomitant]
     Active Substance: LOSARTAN

REACTIONS (1)
  - Productive cough [None]

NARRATIVE: CASE EVENT DATE: 20201106
